FAERS Safety Report 9212873 (Version 2)
Quarter: 2013Q2

REPORT INFORMATION
  Report Type: Spontaneous
  Country: US (occurrence: US)
  Receive Date: 20130405
  Receipt Date: 20130614
  Transmission Date: 20140414
  Serious: No
  Sender: FDA-Public Use
  Company Number: US-009507513-1304USA000680

PATIENT
  Sex: Male

DRUGS (1)
  1. TEMODAR [Suspect]
     Indication: GLIOBLASTOMA
     Dosage: 100 MG, TID, FOR 5 DAYS
     Route: 048

REACTIONS (1)
  - Adverse event [Not Recovered/Not Resolved]
